FAERS Safety Report 17003617 (Version 2)
Quarter: 2019Q4

REPORT INFORMATION
  Report Type: Report from Study
  Country: US (occurrence: US)
  Receive Date: 20191107
  Receipt Date: 20191217
  Transmission Date: 20200122
  Serious: Yes (Hospitalization, Other)
  Sender: FDA-Public Use
  Company Number: US-GLAXOSMITHKLINE-2019-TSO01369-US

PATIENT
  Sex: Female

DRUGS (5)
  1. NIRAPARIB [Suspect]
     Active Substance: NIRAPARIB
     Dosage: 200 MG, QD
     Route: 048
  2. NIRAPARIB [Suspect]
     Active Substance: NIRAPARIB
     Indication: OVARIAN CANCER
     Dosage: 300 MG, QD
     Route: 065
     Dates: start: 20190315, end: 20190325
  3. NIRAPARIB [Suspect]
     Active Substance: NIRAPARIB
     Dosage: 200 MG, QD, PM WITH AND WITHOUT FOOD
     Route: 065
     Dates: start: 20190326, end: 20190326
  4. NIRAPARIB [Suspect]
     Active Substance: NIRAPARIB
     Dosage: 100 MG, QD, PM WITHOUT FOOD
     Route: 065
     Dates: start: 20190401, end: 20190611
  5. NIRAPARIB [Suspect]
     Active Substance: NIRAPARIB
     Dosage: 200 MG, QD AT 10PM WITH SNACK
     Route: 065
     Dates: start: 20190612

REACTIONS (25)
  - Disease progression [Unknown]
  - Paraesthesia [Recovered/Resolved]
  - Eye operation [Unknown]
  - Abdominal pain upper [Unknown]
  - Decreased appetite [Recovered/Resolved]
  - Nausea [Recovered/Resolved]
  - Anxiety [Recovering/Resolving]
  - Headache [Unknown]
  - Pain [Unknown]
  - Pruritus [Unknown]
  - Pneumonia [Unknown]
  - Recurrent cancer [Unknown]
  - Taste disorder [Recovered/Resolved]
  - Constipation [Recovered/Resolved]
  - Tumour marker increased [Unknown]
  - Depression [Recovering/Resolving]
  - Weight decreased [Recovered/Resolved]
  - Dizziness [Recovered/Resolved]
  - Vomiting [Recovered/Resolved]
  - Dehydration [Recovered/Resolved]
  - Asthenopia [Recovered/Resolved]
  - Dermatitis acneiform [Recovered/Resolved]
  - Insomnia [Recovered/Resolved]
  - Fatigue [Recovered/Resolved]
  - Drug ineffective [Unknown]
